FAERS Safety Report 15280980 (Version 2)
Quarter: 2018Q4

REPORT INFORMATION
  Report Type: Spontaneous
  Country: DE (occurrence: DE)
  Receive Date: 20180815
  Receipt Date: 20180906
  Transmission Date: 20190204
  Serious: Yes (Hospitalization, Other)
  Sender: FDA-Public Use
  Company Number: DE-TEVA-2018-DE-940974

PATIENT
  Age: 48 Year
  Sex: Female

DRUGS (1)
  1. VALSARTAN COMP. 80 MG/12,5 MG FILMTABLETTEN [Suspect]
     Active Substance: HYDROCHLOROTHIAZIDE\VALSARTAN
     Dosage: 1 DSF = 80 MILLIGRAM VALSARTAN/ 12.5 MILLIGRAM HYDROCHLOROTHIAZIDE
     Route: 048

REACTIONS (1)
  - Borderline serous tumour of ovary [Unknown]

NARRATIVE: CASE EVENT DATE: 201407
